FAERS Safety Report 6376960-9 (Version None)
Quarter: 2009Q3

REPORT INFORMATION
  Report Type: 
  Country: None (occurrence: None)
  Receive Date: 20090925
  Receipt Date: 20090917
  Transmission Date: 20100115
  Serious: Yes (Hospitalization)
  Sender: FDA-Public Use
  Company Number: US-ABBOTT-09P-163-0598043-00

PATIENT
  Sex: Female
  Weight: 49.94 kg

DRUGS (11)
  1. HUMIRA [Suspect]
     Indication: RHEUMATOID ARTHRITIS
     Route: 058
     Dates: start: 20090216, end: 20090814
  2. PREDNISONE TAB [Concomitant]
     Indication: DRUG USE FOR UNKNOWN INDICATION
     Route: 048
  3. NEURONTIN [Concomitant]
     Indication: DRUG USE FOR UNKNOWN INDICATION
     Route: 048
  4. SOMA [Concomitant]
     Indication: MUSCLE RELAXANT THERAPY
     Route: 048
  5. CALCIUM [Concomitant]
     Indication: MINERAL SUPPLEMENTATION
  6. MAGNESIUM [Concomitant]
     Indication: MINERAL SUPPLEMENTATION
  7. VITAMIN B COMPLEX CAP [Concomitant]
     Indication: VITAMIN SUPPLEMENTATION
  8. VITAMIN B3 [Concomitant]
     Indication: VITAMIN SUPPLEMENTATION
  9. LOVAZA [Concomitant]
     Indication: VITAMIN SUPPLEMENTATION
  10. MULTI-VITAMIN [Concomitant]
     Indication: VITAMIN SUPPLEMENTATION
  11. TYLENOL (CAPLET) [Concomitant]
     Indication: PAIN
     Route: 048

REACTIONS (5)
  - CHEST PAIN [None]
  - DRUG DOSE OMISSION [None]
  - DYSPNOEA [None]
  - HEART RATE DECREASED [None]
  - PULMONARY HYPERTENSION [None]
